FAERS Safety Report 6505959-4 (Version None)
Quarter: 2009Q4

REPORT INFORMATION
  Report Type: 
  Country: None (occurrence: None)
  Receive Date: 20091217
  Receipt Date: 20091217
  Transmission Date: 20100525
  Serious: No
  Sender: FDA-Public Use
  Company Number: None

PATIENT
  Sex: Male
  Weight: 72.5755 kg

DRUGS (1)
  1. SOTALOL HCL [Suspect]
     Indication: HEART RATE IRREGULAR
     Dosage: 80MG TWICE DAILY ORAL
     Route: 048
     Dates: start: 20091026, end: 20091209

REACTIONS (7)
  - DIZZINESS [None]
  - FATIGUE [None]
  - HEADACHE [None]
  - HEART RATE INCREASED [None]
  - HEART RATE IRREGULAR [None]
  - NERVOUSNESS [None]
  - RASH [None]
